FAERS Safety Report 16469033 (Version 9)
Quarter: 2022Q1

REPORT INFORMATION
  Report Type: Spontaneous
  Country: US (occurrence: US)
  Receive Date: 20190624
  Receipt Date: 20220311
  Transmission Date: 20220423
  Serious: No
  Sender: FDA-Public Use
  Company Number: US-PFIZER INC-2019268070

PATIENT
  Age: 75 Year
  Sex: Female
  Weight: 63.039 kg

DRUGS (6)
  1. ESTRADIOL [Suspect]
     Active Substance: ESTRADIOL
     Dosage: 1 MG, UNK (2 WEEKS ONLY)
     Dates: start: 201904
  2. ESTRADIOL [Suspect]
     Active Substance: ESTRADIOL
     Dosage: UNK, ONE A DAY
     Dates: start: 201904, end: 201904
  3. LEVOTHYROXINE [Concomitant]
     Active Substance: LEVOTHYROXINE
     Dosage: 0.88 MG, UNK (33 YEARS AGO, SAME TIME STARTED PREMARIN)
     Dates: start: 1986
  4. LOSARTAN AND HYDROCHLOROTHIAZIDE [Concomitant]
     Active Substance: HYDROCHLOROTHIAZIDE\LOSARTAN POTASSIUM
     Dosage: 100/ 12 MG
     Dates: start: 2016
  5. AMLODIPINE BESYLATE [Concomitant]
     Active Substance: AMLODIPINE BESYLATE
     Dosage: 5 MG
     Dates: start: 2016
  6. ALEVE [Concomitant]
     Active Substance: NAPROXEN SODIUM
     Dosage: 12 HR, 2 A DAY (1AM- 1PM)
     Dates: start: 2016

REACTIONS (4)
  - Drug ineffective [Recovered/Resolved]
  - Off label use [Recovered/Resolved]
  - Headache [Recovered/Resolved]
  - Emotional disorder [Recovered/Resolved]
